FAERS Safety Report 10630952 (Version 1)
Quarter: 2014Q4

REPORT INFORMATION
  Report Type: Spontaneous
  Country: US (occurrence: US)
  Receive Date: 20141205
  Receipt Date: 20141205
  Transmission Date: 20150529
  Serious: No
  Sender: FDA-Public Use
  Company Number: US-BRISTOL-MYERS SQUIBB COMPANY-21442926

PATIENT
  Age: 88 Year
  Sex: Male
  Weight: 70.29 kg

DRUGS (7)
  1. ELIQUIS [Suspect]
     Active Substance: APIXABAN
     Dates: start: 2014
  2. FUROSEMIDE. [Concomitant]
     Active Substance: FUROSEMIDE
  3. LEVOTHYROXINE [Concomitant]
     Active Substance: LEVOTHYROXINE
  4. AMLODIPINE [Concomitant]
     Active Substance: AMLODIPINE BESYLATE
  5. FINASTERIDE. [Concomitant]
     Active Substance: FINASTERIDE
  6. OCUVITE [Concomitant]
     Active Substance: VITAMINS
  7. VITAMIN E [Concomitant]
     Active Substance: .ALPHA.-TOCOPHEROL

REACTIONS (1)
  - Accidental overdose [Unknown]

NARRATIVE: CASE EVENT DATE: 20140926
